FAERS Safety Report 17142781 (Version 1)
Quarter: 2019Q4

REPORT INFORMATION
  Report Type: Report from Study
  Country: FR (occurrence: FR)
  Receive Date: 20191211
  Receipt Date: 20191211
  Transmission Date: 20200122
  Serious: Yes (Other)
  Sender: FDA-Public Use
  Company Number: NVSC2019FR064300

PATIENT
  Age: 60 Year
  Sex: Male

DRUGS (18)
  1. CERTICAN [Suspect]
     Active Substance: EVEROLIMUS
     Dosage: 2.5 MG
     Route: 065
     Dates: start: 20141001, end: 20141118
  2. MYFORTIC [Suspect]
     Active Substance: MYCOPHENOLATE SODIUM
     Indication: IMMUNOSUPPRESSANT DRUG THERAPY
     Dosage: 720 MG
     Route: 065
     Dates: start: 20140820, end: 20150505
  3. ADVAGRAF [Suspect]
     Active Substance: TACROLIMUS
     Dosage: 3 MG
     Route: 065
     Dates: start: 20170428, end: 20180301
  4. CERTICAN [Suspect]
     Active Substance: EVEROLIMUS
     Dosage: 3 MG
     Route: 065
     Dates: start: 20140910, end: 20140930
  5. CERTICAN [Suspect]
     Active Substance: EVEROLIMUS
     Dosage: 3 MG
     Route: 065
     Dates: start: 20141119, end: 20150505
  6. CERTICAN [Suspect]
     Active Substance: EVEROLIMUS
     Dosage: 2 MG
     Route: 065
     Dates: start: 20150506, end: 20150804
  7. CERTICAN [Suspect]
     Active Substance: EVEROLIMUS
     Dosage: 3 MG
     Route: 065
     Dates: start: 20150805, end: 20160405
  8. CERTICAN [Suspect]
     Active Substance: EVEROLIMUS
     Dosage: 2 MG
     Route: 065
     Dates: start: 20170721, end: 20180118
  9. ADVAGRAF [Suspect]
     Active Substance: TACROLIMUS
     Dosage: 4 MG
     Route: 065
     Dates: start: 20170105, end: 20170427
  10. CERTICAN [Suspect]
     Active Substance: EVEROLIMUS
     Dosage: 2.5 MG
     Route: 065
     Dates: start: 20160406, end: 20170720
  11. ADVAGRAF [Suspect]
     Active Substance: TACROLIMUS
     Dosage: 2 MG
     Route: 065
     Dates: start: 20180518, end: 20190329
  12. CERTICAN [Suspect]
     Active Substance: EVEROLIMUS
     Indication: LIVER TRANSPLANT
     Dosage: 4 MG
     Route: 065
     Dates: start: 20140820, end: 20140909
  13. ADVAGRAF [Suspect]
     Active Substance: TACROLIMUS
     Indication: IMMUNOSUPPRESSANT DRUG THERAPY
     Dosage: 2 MG
     Route: 065
     Dates: start: 20150506, end: 20150804
  14. ADVAGRAF [Suspect]
     Active Substance: TACROLIMUS
     Dosage: 3 MG
     Route: 065
     Dates: start: 20150805, end: 20170104
  15. ADVAGRAF [Suspect]
     Active Substance: TACROLIMUS
     Dosage: 2.5 MG
     Route: 065
     Dates: start: 20180302, end: 20180517
  16. CERTICAN [Suspect]
     Active Substance: EVEROLIMUS
     Dosage: 1 MG
     Route: 065
     Dates: start: 20180109, end: 20180830
  17. CERTICAN [Suspect]
     Active Substance: EVEROLIMUS
     Dosage: 0.5 MG
     Route: 065
     Dates: start: 20180831, end: 20190329
  18. CORTANCYL [Suspect]
     Active Substance: PREDNISONE
     Indication: IMMUNOSUPPRESSANT DRUG THERAPY
     Dosage: 5 MG
     Route: 065
     Dates: start: 20140625, end: 20160119

REACTIONS (1)
  - Renal failure [Not Recovered/Not Resolved]

NARRATIVE: CASE EVENT DATE: 20181126
